FAERS Safety Report 8596934-7 (Version None)
Quarter: 2012Q3

REPORT INFORMATION
  Report Type: 
  Country: None (occurrence: None)
  Receive Date: 20120815
  Receipt Date: 20120803
  Transmission Date: 20120928
  Serious: Yes (Hospitalization)
  Sender: FDA-Public Use
  Company Number: DE-AMGEN-UK242470

PATIENT
  Age: 53 Year
  Sex: Male

DRUGS (14)
  1. INSULIN HUMAN [Concomitant]
     Dosage: UNK UNK, UNK
     Route: 058
  2. ENOXAPARIN [Concomitant]
     Dosage: UNK UNK, BID
     Route: 058
  3. DREISAVIT [Concomitant]
     Dosage: UNK UNK, QD
  4. RAMIPRIL [Concomitant]
     Dosage: UNK UNK, QD
  5. NEURONTIN [Concomitant]
     Dosage: UNK UNK, QD
  6. CALCIUM [Concomitant]
     Dosage: UNK UNK, UNK
  7. PROTAPHANE MC [Concomitant]
     Dosage: UNK UNK, UNK
     Route: 058
  8. CINACALCET HYDROCHLORIDE [Suspect]
     Indication: HYPERPARATHYROIDISM SECONDARY
     Dosage: UNK UNK, QD
     Route: 048
     Dates: start: 20070213
  9. ASPIRIN [Concomitant]
     Dosage: UNK UNK, QD
  10. ALUMINUIM CHLORHYDROXIDE-COMPLEX [Suspect]
     Dosage: UNK UNK, UNK
     Route: 065
  11. SODIUM BICARBONATE [Concomitant]
     Dosage: UNK UNK, QD
  12. CALCITRIOL [Concomitant]
  13. DEKRISTOL [Concomitant]
     Dosage: UNK UNK, QMO
  14. METOPROLOL SUCCINATE [Concomitant]
     Dosage: UNK UNK, BID

REACTIONS (1)
  - GASTRITIS [None]
